FAERS Safety Report 24620555 (Version 4)
Quarter: 2024Q4

REPORT INFORMATION
  Report Type: Report from Study
  Country: MX (occurrence: MX)
  Receive Date: 20241114
  Receipt Date: 20241217
  Transmission Date: 20250115
  Serious: Yes (Other)
  Sender: NOVARTIS
  Company Number: MX-002147023-NVSC2024MX186187

PATIENT
  Age: 35 Year
  Sex: Female
  Weight: 59.2 kg

DRUGS (10)
  1. KISQALI [Suspect]
     Active Substance: RIBOCICLIB
     Indication: Breast cancer metastatic
     Dosage: 400 MG, QD (2 DOSAGE REGIMEN)
     Route: 048
     Dates: start: 20230808, end: 202402
  2. KISQALI [Suspect]
     Active Substance: RIBOCICLIB
     Indication: Breast cancer female
     Dosage: 600 MG, QD (3 DF)
     Route: 048
     Dates: start: 202402
  3. KISQALI [Suspect]
     Active Substance: RIBOCICLIB
     Dosage: 3 DOSAGE FORM (200 MG), QD
     Route: 048
  4. KISQALI [Suspect]
     Active Substance: RIBOCICLIB
     Dosage: 200 MG, (3 DF)
     Route: 048
     Dates: start: 202402
  5. LETROZOLE [Concomitant]
     Active Substance: LETROZOLE
     Indication: Breast cancer
     Dosage: 1 DOSAGE FORM (2.5 MG), QD, TABLET
     Route: 048
     Dates: start: 20230808, end: 202409
  6. ANASTROZOLE [Concomitant]
     Active Substance: ANASTROZOLE
     Indication: Breast cancer
     Dosage: 1 DOSAGE FORM (1 MG), QD, TABLET
     Route: 048
     Dates: start: 202410
  7. CALCIUM [Concomitant]
     Active Substance: CALCIUM
     Indication: Vitamin supplementation
     Dosage: 1 DOSAGE FORM (600 MG / 400 UI), QD, TABLET
     Route: 048
     Dates: start: 2023
  8. GOSERELIN [Concomitant]
     Active Substance: GOSERELIN
     Indication: Breast cancer
     Dosage: 1 DOSAGE FORM (10.8 MG), QD, IMPLANT
     Route: 058
     Dates: start: 20230808
  9. ACETAMINOPHEN [Concomitant]
     Active Substance: ACETAMINOPHEN
     Indication: Headache
     Dosage: 1 DOSAGE FORM (500 MG), PRN, TABLET
     Route: 048
     Dates: start: 2022
  10. ACETAMINOPHEN [Concomitant]
     Active Substance: ACETAMINOPHEN
     Indication: Breast pain
     Dosage: 500 MG (1 DF)
     Route: 048
     Dates: start: 2023

REACTIONS (33)
  - Infarction [Recovered/Resolved]
  - Anaemia [Recovered/Resolved]
  - Decreased appetite [Recovering/Resolving]
  - Irritable bowel syndrome [Not Recovered/Not Resolved]
  - Decreased immune responsiveness [Not Recovered/Not Resolved]
  - Pain [Unknown]
  - Constipation [Recovered/Resolved]
  - Inflammation [Unknown]
  - Abdominal pain upper [Not Recovered/Not Resolved]
  - Fatigue [Unknown]
  - Diarrhoea [Recovering/Resolving]
  - Weight decreased [Not Recovered/Not Resolved]
  - Dry skin [Not Recovered/Not Resolved]
  - Pruritus [Not Recovered/Not Resolved]
  - Nausea [Recovering/Resolving]
  - Vomiting [Recovered/Resolved]
  - Tachycardia [Recovered/Resolved]
  - Gastritis [Not Recovered/Not Resolved]
  - Speech disorder [Recovered/Resolved]
  - Back pain [Recovered/Resolved]
  - Dyspnoea [Recovered/Resolved]
  - Chest pain [Recovered/Resolved]
  - Hypoaesthesia [Recovered/Resolved]
  - Pain in extremity [Recovered/Resolved]
  - Myalgia [Not Recovered/Not Resolved]
  - Mean cell volume abnormal [Unknown]
  - Mean cell haemoglobin increased [Unknown]
  - Blood creatinine abnormal [Unknown]
  - Neutrophil count decreased [Unknown]
  - Amylase increased [Unknown]
  - White blood cell count decreased [Unknown]
  - Increased appetite [Not Recovered/Not Resolved]
  - Cardiac disorder [Recovered/Resolved]

NARRATIVE: CASE EVENT DATE: 20230801
